FAERS Safety Report 5792856-5 (Version None)
Quarter: 2008Q2

REPORT INFORMATION
  Report Type: 
  Country: None (occurrence: None)
  Receive Date: 20080624
  Receipt Date: 20080609
  Transmission Date: 20081010
  Serious: Yes (Other)
  Sender: FDA-Public Use
  Company Number: 002#1#2008-00379

PATIENT
  Age: 83 Year
  Sex: Female

DRUGS (1)
  1. NEUPRO [Suspect]
     Indication: PARKINSON'S DISEASE
     Dosage: 6MG/24H,1 IN1 D,TRANSDERMAL
     Route: 062
     Dates: start: 20080421

REACTIONS (4)
  - DEPRESSION [None]
  - DRUG DEPENDENCE [None]
  - MOOD SWINGS [None]
  - SUICIDAL IDEATION [None]
